FAERS Safety Report 12591576 (Version 1)
Quarter: 2016Q3

REPORT INFORMATION
  Report Type: Spontaneous
  Country: US (occurrence: None)
  Receive Date: 20160725
  Receipt Date: 20160725
  Transmission Date: 20161109
  Serious: No
  Sender: FDA-Public Use
  Company Number: None

PATIENT
  Age: 66 Year
  Sex: Female

DRUGS (1)
  1. REPATHA [Suspect]
     Active Substance: EVOLOCUMAB
     Indication: HYPERLIPIDAEMIA

REACTIONS (6)
  - Nausea [None]
  - Hot flush [None]
  - Paranoia [None]
  - Hyperhidrosis [None]
  - Headache [None]
  - Pain [None]

NARRATIVE: CASE EVENT DATE: 20160722
